FAERS Safety Report 5406715-0 (Version None)
Quarter: 2007Q3

REPORT INFORMATION
  Report Type: 
  Country: None (occurrence: None)
  Receive Date: 20070806
  Receipt Date: 20070806
  Transmission Date: 20080115
  Serious: No
  Sender: FDA-Public Use
  Company Number: None

PATIENT
  Age: 62 Year
  Sex: Female
  Weight: 63.5036 kg

DRUGS (1)
  1. ZOLPIDEM [Suspect]
     Indication: INSOMNIA
     Dosage: 1 AT BEDTIME ONCE A NIGHT PO
     Route: 048
     Dates: start: 20070525, end: 20070804

REACTIONS (6)
  - ANGER [None]
  - DEPRESSION [None]
  - DISTURBANCE IN ATTENTION [None]
  - INITIAL INSOMNIA [None]
  - IRRITABILITY [None]
  - SOMNOLENCE [None]
